FAERS Safety Report 8304701-4 (Version None)
Quarter: 2012Q2

REPORT INFORMATION
  Report Type: 
  Country: None (occurrence: None)
  Receive Date: 20120423
  Receipt Date: 20120419
  Transmission Date: 20120825
  Serious: Yes (Other)
  Sender: FDA-Public Use
  Company Number: IT-SANOFI-AVENTIS-2012SA027132

PATIENT
  Age: 38 Year
  Sex: Female

DRUGS (5)
  1. CYCLOPHOSPHAMIDE [Concomitant]
     Indication: BREAST CANCER
     Route: 042
     Dates: start: 20120222, end: 20120316
  2. NEULASTA [Concomitant]
     Indication: BREAST CANCER
     Dates: start: 20120222, end: 20120316
  3. TAXOTERE [Suspect]
     Route: 041
     Dates: start: 20120316, end: 20120316
  4. TAXOTERE [Suspect]
     Indication: BREAST CANCER
     Route: 041
     Dates: start: 20120222, end: 20120222
  5. EPIRUBICIN HYDROCHLORIDE [Concomitant]
     Indication: BREAST CANCER
     Dates: start: 20120222, end: 20120316

REACTIONS (2)
  - OPTIC NEURITIS [None]
  - AMAUROSIS [None]
